FAERS Safety Report 24592435 (Version 1)
Quarter: 2024Q4

REPORT INFORMATION
  Report Type: Spontaneous
  Country: US (occurrence: US)
  Receive Date: 20241108
  Receipt Date: 20241108
  Transmission Date: 20250115
  Serious: Yes (Life-Threatening, Other)
  Sender: ASTELLAS
  Company Number: US-ASTELLAS-2024-AER-017237

PATIENT

DRUGS (1)
  1. PADCEV [Suspect]
     Active Substance: ENFORTUMAB VEDOTIN-EJFV
     Indication: Transitional cell carcinoma
     Route: 050

REACTIONS (1)
  - Stevens-Johnson syndrome [Recovered/Resolved with Sequelae]
